FAERS Safety Report 12351562 (Version 7)
Quarter: 2017Q1

REPORT INFORMATION
  Report Type: Spontaneous
  Country: ES (occurrence: ES)
  Receive Date: 20160510
  Receipt Date: 20170130
  Transmission Date: 20170428
  Serious: Yes (Hospitalization, Other)
  Sender: FDA-Public Use
  Company Number: ES-TAKEDA-2016MPI003887

PATIENT
  Age: 77 Year
  Sex: Male
  Weight: 79 kg

DRUGS (15)
  1. DARATUMUMAB [Suspect]
     Active Substance: DARATUMUMAB
     Indication: PLASMA CELL MYELOMA
     Dosage: 1264 MG, UNK
     Route: 042
     Dates: start: 20160226, end: 20160304
  2. VELCADE [Suspect]
     Active Substance: BORTEZOMIB
     Indication: PLASMA CELL MYELOMA
     Dosage: 2.42 MG, UNK
     Route: 058
     Dates: start: 20160226
  3. PANTOPRAZOL [Concomitant]
     Active Substance: PANTOPRAZOLE SODIUM
     Indication: DISCOMFORT
     Dosage: UNK
     Route: 065
     Dates: start: 20160310, end: 20160310
  4. PRIMPERAN [Concomitant]
     Active Substance: METOCLOPRAMIDE HYDROCHLORIDE
     Indication: DISCOMFORT
     Dosage: UNK
     Route: 065
     Dates: start: 20160310, end: 20160310
  5. VELCADE [Suspect]
     Active Substance: BORTEZOMIB
     Dosage: 2.42 MG, UNK
     Route: 058
     Dates: start: 20160304
  6. VELCADE [Suspect]
     Active Substance: BORTEZOMIB
     Dosage: 2.43 MG, UNK
     Route: 058
     Dates: start: 20160317
  7. VELCADE [Suspect]
     Active Substance: BORTEZOMIB
     Dosage: 1.8 MG, UNK
     Route: 058
     Dates: start: 20160412
  8. DARATUMUMAB [Suspect]
     Active Substance: DARATUMUMAB
     Dosage: 1264 MG, UNK
     Route: 042
     Dates: start: 20160406
  9. MELPHALAN [Suspect]
     Active Substance: MELPHALAN
     Indication: PLASMA CELL MYELOMA
     Dosage: 16 MG, UNK
     Route: 048
     Dates: start: 20160226
  10. DEXAMETHASONE. [Suspect]
     Active Substance: DEXAMETHASONE
     Indication: PLASMA CELL MYELOMA
     Dosage: 20 MG, 1/WEEK
     Route: 048
     Dates: start: 20160227
  11. VELCADE [Suspect]
     Active Substance: BORTEZOMIB
     Dosage: 2.43 MG, UNK
     Route: 058
     Dates: start: 20160401
  12. VELCADE [Suspect]
     Active Substance: BORTEZOMIB
     Dosage: 2.42 MG, UNK
     Route: 058
     Dates: start: 20160229
  13. VELCADE [Suspect]
     Active Substance: BORTEZOMIB
     Dosage: 2.42 MG, UNK
     Route: 058
     Dates: start: 20160307
  14. VELCADE [Suspect]
     Active Substance: BORTEZOMIB
     Dosage: 2.43 MG, UNK
     Route: 058
     Dates: start: 20160321
  15. VELCADE [Suspect]
     Active Substance: BORTEZOMIB
     Dosage: 1.8 MG, UNK
     Route: 058
     Dates: start: 20160419

REACTIONS (10)
  - Rash [Unknown]
  - Discomfort [Recovered/Resolved]
  - Nausea [Unknown]
  - Hypophagia [Unknown]
  - Renal impairment [Recovered/Resolved]
  - Vomiting [Recovered/Resolved]
  - Polyneuropathy [Unknown]
  - Dehydration [Unknown]
  - Hypocalcaemia [Recovering/Resolving]
  - Pyrexia [Unknown]

NARRATIVE: CASE EVENT DATE: 20160309
